FAERS Safety Report 21667836 (Version 1)
Quarter: 2022Q4

REPORT INFORMATION
  Report Type: Spontaneous
  Country: US (occurrence: US)
  Receive Date: 20221201
  Receipt Date: 20221201
  Transmission Date: 20230113
  Serious: No
  Sender: FDA-Public Use
  Company Number: US-LUNDBECK-DKLU3054830

PATIENT
  Age: 1 Year
  Sex: Female
  Weight: 10.04 kg

DRUGS (2)
  1. SABRIL [Suspect]
     Active Substance: VIGABATRIN
     Indication: Infantile spasms
     Route: 048
  2. GLYCERIN SUPPOSITORIES [Concomitant]
     Indication: Product used for unknown indication
     Route: 054

REACTIONS (2)
  - Reflux gastritis [Unknown]
  - Vomiting [Recovering/Resolving]
